FAERS Safety Report 17707862 (Version 1)
Quarter: 2020Q2

REPORT INFORMATION
  Report Type: Spontaneous
  Country: DK (occurrence: DK)
  Receive Date: 20200424
  Receipt Date: 20200424
  Transmission Date: 20200714
  Serious: Yes (Hospitalization)
  Sender: FDA-Public Use
  Company Number: NVSC2020DK110147

PATIENT
  Age: 66 Year
  Sex: Male

DRUGS (9)
  1. ATORVASTATIN [Concomitant]
     Active Substance: ATORVASTATIN
     Indication: HYPERCHOLESTEROLAEMIA
     Dosage: 80 MG, QD
     Route: 048
     Dates: start: 20150115
  2. LOSARTAN. [Concomitant]
     Active Substance: LOSARTAN
     Indication: CARDIAC FAILURE
     Dosage: 100 MG, QD
     Route: 048
     Dates: start: 20190121
  3. GLYCERYLNITRAT [Concomitant]
     Indication: ANGINA PECTORIS
     Dosage: 1 DF
     Route: 048
     Dates: start: 20150119
  4. SPIRONOLACTONE. [Concomitant]
     Active Substance: SPIRONOLACTONE
     Indication: CARDIAC FAILURE
     Dosage: 25 MG, QD
     Route: 048
     Dates: start: 20190121
  5. DIGOXIN. [Concomitant]
     Active Substance: DIGOXIN
     Indication: ARRHYTHMIA
     Dosage: 125 UG, QD
     Route: 048
     Dates: start: 20160712
  6. APIXABAN [Concomitant]
     Active Substance: APIXABAN
     Indication: THROMBOSIS PROPHYLAXIS
     Dosage: 2 DF, QD
     Route: 048
     Dates: start: 20190123
  7. FUROSEMID ^HEXAL^ [Suspect]
     Active Substance: FUROSEMIDE
     Indication: DIURETIC THERAPY
     Dosage: 40 MG, QD
     Route: 048
     Dates: start: 20190130, end: 20200110
  8. CARVEDILOL. [Suspect]
     Active Substance: CARVEDILOL
     Indication: MYOCARDIAL ISCHAEMIA
     Dosage: 50 MG, QD
     Route: 048
     Dates: start: 201506
  9. ACETYLSALICYLIC ACID [Concomitant]
     Active Substance: ASPIRIN
     Indication: THROMBOSIS PROPHYLAXIS
     Dosage: 75 MG, QD
     Route: 048
     Dates: start: 20120125

REACTIONS (1)
  - Hyponatraemia [Recovering/Resolving]

NARRATIVE: CASE EVENT DATE: 2019
